FAERS Safety Report 9528210 (Version 7)
Quarter: 2014Q1

REPORT INFORMATION
  Report Type: Report from Study
  Country: BR (occurrence: BR)
  Receive Date: 20130917
  Receipt Date: 20140114
  Transmission Date: 20141002
  Serious: Yes (Hospitalization, Other)
  Sender: FDA-Public Use
  Company Number: PHHY2013BR101908

PATIENT
  Age: 58 Year
  Sex: Female
  Weight: 57 kg

DRUGS (1)
  1. DIOVAN AMLO FIX [Suspect]
     Indication: HYPERTENSION
     Dosage: 1 DF (160 MG VALS AND 5 MG AMLO), DAILY
     Route: 048

REACTIONS (26)
  - Cerebrovascular accident [Recovered/Resolved]
  - Hemiplegia [Recovered/Resolved]
  - Pain in extremity [Not Recovered/Not Resolved]
  - Abdominal pain [Recovering/Resolving]
  - Hypertension [Not Recovered/Not Resolved]
  - Headache [Not Recovered/Not Resolved]
  - Erythema [Recovered/Resolved]
  - Vascular rupture [Unknown]
  - Ischaemia [Unknown]
  - Migraine [Unknown]
  - Inflammation [Not Recovered/Not Resolved]
  - Rib fracture [Not Recovered/Not Resolved]
  - Movement disorder [Recovering/Resolving]
  - Accident [Recovering/Resolving]
  - Gastrooesophageal reflux disease [Recovering/Resolving]
  - Duodenitis [Recovering/Resolving]
  - Gastrointestinal pain [Recovering/Resolving]
  - Haematochezia [Recovered/Resolved]
  - Laceration [Recovering/Resolving]
  - Fall [Unknown]
  - Skin haemorrhage [Recovering/Resolving]
  - Gastritis [Not Recovered/Not Resolved]
  - Panic reaction [Not Recovered/Not Resolved]
  - Onychomadesis [Not Recovered/Not Resolved]
  - Malaise [Unknown]
  - Pain [Unknown]
